FAERS Safety Report 7813151-6 (Version None)
Quarter: 2011Q4

REPORT INFORMATION
  Report Type: 
  Country: None (occurrence: None)
  Receive Date: 20111013
  Receipt Date: 20111011
  Transmission Date: 20120403
  Serious: Yes (Life-Threatening, Hospitalization)
  Sender: FDA-Public Use
  Company Number: GXKR2011DE03021

PATIENT

DRUGS (1)
  1. CEFTRIAXONE [Suspect]
     Indication: BORRELIA TEST POSITIVE
     Dosage: UNK
     Route: 042
     Dates: start: 20050101, end: 20110301

REACTIONS (2)
  - TUBULOINTERSTITIAL NEPHRITIS [None]
  - RENAL FAILURE ACUTE [None]
